FAERS Safety Report 4655717-0 (Version None)
Quarter: 2005Q2

REPORT INFORMATION
  Report Type: 
  Country: None (occurrence: None)
  Receive Date: 20050505
  Receipt Date: 20050413
  Transmission Date: 20051028
  Serious: Yes (Hospitalization, Other)
  Sender: FDA-Public Use
  Company Number: EWC050443569

PATIENT
  Sex: Female

DRUGS (4)
  1. FORTEO [Suspect]
     Indication: OSTEOPOROSIS
     Dosage: 20 UG/ONCE
     Dates: start: 20040525
  2. KALCIPOS-D [Concomitant]
  3. DEHYDROEPIANDROSTERONE [Concomitant]
  4. PREDNISOLONE [Concomitant]

REACTIONS (3)
  - HAND FRACTURE [None]
  - LOSS OF CONSCIOUSNESS [None]
  - ROAD TRAFFIC ACCIDENT [None]
